FAERS Safety Report 6839475-7 (Version None)
Quarter: 2010Q3

REPORT INFORMATION
  Report Type: 
  Country: None (occurrence: None)
  Receive Date: 20100714
  Receipt Date: 20090730
  Transmission Date: 20110219
  Serious: No
  Sender: FDA-Public Use
  Company Number: A0799688A

PATIENT
  Age: 40 Year
  Sex: Female

DRUGS (2)
  1. FLOVENT [Suspect]
     Indication: ASTHMA
     Dosage: 2PUFF TWICE PER DAY
     Route: 055
     Dates: start: 20090722
  2. NOVOLOG [Concomitant]

REACTIONS (4)
  - COUGH [None]
  - DYSPEPSIA [None]
  - PARAESTHESIA [None]
  - WHEEZING [None]
